FAERS Safety Report 7798466-2 (Version None)
Quarter: 2011Q4

REPORT INFORMATION
  Report Type: 
  Country: None (occurrence: None)
  Receive Date: 20111005
  Receipt Date: 20110928
  Transmission Date: 20120403
  Serious: Yes (Other)
  Sender: FDA-Public Use
  Company Number: US-AMGEN-USASP2011044333

PATIENT
  Age: 37 Year
  Sex: Male
  Weight: 108.3 kg

DRUGS (1)
  1. NPLATE [Suspect]
     Indication: IDIOPATHIC THROMBOCYTOPENIC PURPURA
     Dosage: 3 MUG/KG, UNK
     Dates: start: 20110325

REACTIONS (2)
  - LIVER FUNCTION TEST ABNORMAL [None]
  - ARTHRALGIA [None]
